FAERS Safety Report 18559724 (Version 1)
Quarter: 2020Q4

REPORT INFORMATION
  Report Type: Spontaneous
  Country: GB (occurrence: GB)
  Receive Date: 20201130
  Receipt Date: 20201130
  Transmission Date: 20210114
  Serious: Yes (Hospitalization, Other)
  Sender: FDA-Public Use
  Company Number: GB-TEVA-2020-GB-1853360

PATIENT
  Age: 51 Year
  Sex: Male
  Weight: 96 kg

DRUGS (3)
  1. IBUPROFEN. [Suspect]
     Active Substance: IBUPROFEN
     Dosage: 200 MG
     Route: 048
  2. LAXIDO [Concomitant]
     Active Substance: POLYETHYLENE GLYCOL 3350\POTASSIUM CHLORIDE\SODIUM BICARBONATE\SODIUM CHLORIDE
     Dosage: 1-2  DAILY, IF YOU NEED TO INCREASE TO 2 SACHETS, TAKE BOTH WITHIN 6 HOURS OF EACH OTHER.
     Dates: start: 20201102
  3. OMEPRAZOLE. [Concomitant]
     Active Substance: OMEPRAZOLE
     Dosage: 40 MG
     Dates: start: 20201102

REACTIONS (1)
  - Peptic ulcer [Recovered/Resolved with Sequelae]

NARRATIVE: CASE EVENT DATE: 20201027
